FAERS Safety Report 4744661-6 (Version None)
Quarter: 2005Q3

REPORT INFORMATION
  Report Type: 
  Country: None (occurrence: None)
  Receive Date: 20050815
  Receipt Date: 20050804
  Transmission Date: 20060218
  Serious: Yes (Hospitalization)
  Sender: FDA-Public Use
  Company Number: US-JNJFOC-20050801691

PATIENT
  Sex: Female

DRUGS (8)
  1. INFLIXIMAB [Suspect]
     Indication: RHEUMATOID ARTHRITIS
  2. METHOTREXATE [Concomitant]
  3. FOLIC ACID [Concomitant]
  4. CALCIUM GLUCONATE [Concomitant]
  5. PREDNISONE [Concomitant]
  6. ULTRAM [Concomitant]
  7. ESTROGEN [Concomitant]
  8. TYLENOL (CAPLET) [Concomitant]
     Dosage: AS NECESSARY

REACTIONS (1)
  - CHOLECYSTECTOMY [None]
